FAERS Safety Report 18325039 (Version 10)
Quarter: 2022Q2

REPORT INFORMATION
  Report Type: Spontaneous
  Country: US (occurrence: US)
  Receive Date: 20200929
  Receipt Date: 20220425
  Transmission Date: 20220721
  Serious: Yes (Other)
  Sender: FDA-Public Use
  Company Number: US-PFIZER INC-2019546744

PATIENT
  Age: 77 Year
  Sex: Female
  Weight: 80.74 kg

DRUGS (5)
  1. TOVIAZ [Suspect]
     Active Substance: FESOTERODINE FUMARATE
     Indication: Hypertonic bladder
     Dosage: 4 MG, 1X/DAY (AT NIGHT TIME)
  2. TOVIAZ [Suspect]
     Active Substance: FESOTERODINE FUMARATE
     Indication: Urge incontinence
     Dosage: 4 MG, 2X/DAY (ONE 4 MG AT NIGHT TIME AND ONE 4 MG IN THE MORNING)
     Route: 048
  3. TOVIAZ [Suspect]
     Active Substance: FESOTERODINE FUMARATE
     Indication: Dysuria
     Dosage: 4 MG, 2X/DAY
     Route: 048
  4. TOVIAZ [Suspect]
     Active Substance: FESOTERODINE FUMARATE
     Indication: Atrophic vulvovaginitis
     Dosage: 8 MG, 2X/DAY (TAKING TWO EACH TIME TWICE A DAY)
  5. TOVIAZ [Suspect]
     Active Substance: FESOTERODINE FUMARATE
     Dosage: 8 MG, DAILY
     Route: 048
     Dates: start: 20220302

REACTIONS (7)
  - Foot fracture [Unknown]
  - Blindness unilateral [Unknown]
  - Cerebrovascular accident [Unknown]
  - Weight increased [Unknown]
  - Chronic obstructive pulmonary disease [Unknown]
  - Off label use [Unknown]
  - Prescribed overdose [Unknown]

NARRATIVE: CASE EVENT DATE: 20200101
